FAERS Safety Report 6105001-3 (Version None)
Quarter: 2009Q1

REPORT INFORMATION
  Report Type: 
  Country: None (occurrence: None)
  Receive Date: 20090306
  Receipt Date: 20090224
  Transmission Date: 20090719
  Serious: No
  Sender: FDA-Public Use
  Company Number: US-BAYER-200821796NA

PATIENT
  Age: 25 Year
  Sex: Female
  Weight: 54 kg

DRUGS (1)
  1. YAZ [Suspect]
     Indication: ORAL CONTRACEPTION
     Route: 048
     Dates: start: 20070808, end: 20080427

REACTIONS (3)
  - ANTEPARTUM HAEMORRHAGE [None]
  - CHLAMYDIA IDENTIFICATION TEST POSITIVE [None]
  - PREGNANCY ON ORAL CONTRACEPTIVE [None]
